FAERS Safety Report 8834881 (Version 1)
Quarter: 2012Q4

REPORT INFORMATION
  Report Type: Spontaneous
  Country: GB (occurrence: None)
  Receive Date: 20121009
  Receipt Date: 20121009
  Transmission Date: 20130627
  Serious: Yes (Disabling)
  Sender: FDA-Public Use
  Company Number: 2012-01438

PATIENT
  Age: 36 Year
  Sex: Female
  Weight: 105.6 kg

DRUGS (4)
  1. SIMVASTATIN [Suspect]
     Indication: HIGH CHOLESTEROL
     Dosage: 40 MG (40 MG, 1 IN 1 D) Oral
     Route: 048
     Dates: start: 20120420, end: 20120916
  2. RAMIPRIL (UNKNOWN) (RAMIPRIL) [Concomitant]
  3. SALBUTAMOL (UNKNOWN) [Concomitant]
  4. FLUTICASONE PROPIONATE MICRONISED + SALMETEROL XINAFOATE MICRONISED  (SERETIDE) [Concomitant]

REACTIONS (5)
  - Dizziness [None]
  - Dyspepsia [None]
  - Hunger [None]
  - Insomnia [None]
  - Pain in extremity [None]
